FAERS Safety Report 8401841-6 (Version None)
Quarter: 2012Q2

REPORT INFORMATION
  Report Type: 
  Country: None (occurrence: None)
  Receive Date: 20120601
  Receipt Date: 20120522
  Transmission Date: 20120825
  Serious: Yes (Hospitalization)
  Sender: FDA-Public Use
  Company Number: US-JNJFOC-20120517384

PATIENT
  Sex: Female
  Weight: 61.69 kg

DRUGS (2)
  1. RISPERDAL CONSTA [Suspect]
     Indication: SCHIZOPHRENIA
     Route: 030
  2. LAMOTRIGINE [Concomitant]
     Route: 065

REACTIONS (4)
  - HOSPITALISATION [None]
  - FEELING ABNORMAL [None]
  - MUSCLE SPASMS [None]
  - DRY EYE [None]
